FAERS Safety Report 17033958 (Version 4)
Quarter: 2020Q2

REPORT INFORMATION
  Report Type: Spontaneous
  Country: US (occurrence: US)
  Receive Date: 20191114
  Receipt Date: 20200521
  Transmission Date: 20200713
  Serious: Yes (Hospitalization)
  Sender: FDA-Public Use
  Company Number: US-ACTELION-A-NJ2019-187502

PATIENT
  Sex: Female
  Weight: 72.56 kg

DRUGS (3)
  1. REMODULIN [Concomitant]
     Active Substance: TREPROSTINIL
     Dosage: 25 NG
     Route: 042
  2. SILDENAFIL CITRATE. [Concomitant]
     Active Substance: SILDENAFIL CITRATE
  3. OPSUMIT [Suspect]
     Active Substance: MACITENTAN
     Indication: PULMONARY ARTERIAL HYPERTENSION
     Dosage: 10 MG, QD
     Route: 048

REACTIONS (10)
  - Musculoskeletal chest pain [Unknown]
  - Dyspnoea [Unknown]
  - Pericarditis [Unknown]
  - Musculoskeletal pain [Unknown]
  - Malaise [Unknown]
  - Chest pain [Unknown]
  - Condition aggravated [Unknown]
  - Hospitalisation [Unknown]
  - Infusion site irritation [Unknown]
  - Infusion site pruritus [Unknown]
